FAERS Safety Report 5658738-4 (Version None)
Quarter: 2008Q1

REPORT INFORMATION
  Report Type: 
  Country: None (occurrence: None)
  Receive Date: 20080310
  Receipt Date: 20070402
  Transmission Date: 20080703
  Serious: No
  Sender: FDA-Public Use
  Company Number: US-BAYER-200711000BCC

PATIENT
  Age: 46 Year
  Sex: Female
  Weight: 63 kg

DRUGS (3)
  1. ALEVE [Suspect]
     Indication: BACK PAIN
     Dosage: UNIT DOSE: 220 MG
     Route: 048
     Dates: start: 20060601, end: 20070330
  2. VICODIN [Concomitant]
  3. VOLTAREN [Concomitant]

REACTIONS (2)
  - STOMACH DISCOMFORT [None]
  - VOMITING [None]
